FAERS Safety Report 8199618-2 (Version None)
Quarter: 2012Q1

REPORT INFORMATION
  Report Type: 
  Country: None (occurrence: None)
  Receive Date: 20120310
  Receipt Date: 20120302
  Transmission Date: 20120608
  Serious: Yes (Other)
  Sender: FDA-Public Use
  Company Number: US-VERTEX PHARMACEUTICALS INC.-AE-2011-002068

PATIENT
  Sex: Female
  Weight: 53.572 kg

DRUGS (11)
  1. PEGASYS [Concomitant]
     Dates: start: 20111110
  2. FEXOFENADINE [Concomitant]
     Indication: HYPERSENSITIVITY
     Route: 048
  3. HYDROXYZINE [Concomitant]
     Indication: PRURITUS
     Route: 048
  4. VITAMIN D [Concomitant]
     Indication: VITAMIN SUPPLEMENTATION
     Route: 048
  5. INCIVEK [Suspect]
     Indication: HEPATITIS C
     Route: 048
     Dates: start: 20110928, end: 20111110
  6. LISINOPRIL [Concomitant]
     Indication: HYPERTENSION
     Route: 048
  7. OMEPRAZOLE [Concomitant]
     Indication: GASTRIC DISORDER
     Route: 048
  8. MEPHYTON [Concomitant]
     Indication: VITAMIN K
     Route: 048
  9. PEGASYS [Concomitant]
     Indication: HEPATITIS C
     Route: 058
     Dates: start: 20110927
  10. CALIUM WITH VITAMIN D [Concomitant]
     Indication: VITAMIN SUPPLEMENTATION
     Route: 048
  11. RIBAVIRIN [Concomitant]
     Indication: HEPATITIS C
     Route: 048
     Dates: start: 20110928, end: 20111110

REACTIONS (10)
  - NASOPHARYNGITIS [None]
  - DRUG DOSE OMISSION [None]
  - OROPHARYNGEAL PAIN [None]
  - ASCITES [None]
  - COUGH [None]
  - ANAEMIA [None]
  - VOMITING [None]
  - HEPATIC CIRRHOSIS [None]
  - PRURITUS [None]
  - THROMBOCYTOPENIA [None]
